FAERS Safety Report 17740994 (Version 1)
Quarter: 2020Q2

REPORT INFORMATION
  Report Type: Report from Study
  Country: DE (occurrence: DE)
  Receive Date: 20200504
  Receipt Date: 20200504
  Transmission Date: 20200714
  Serious: Yes (Congenital Anomaly)
  Sender: FDA-Public Use
  Company Number: DE-MYLANLABS-2020M1043583

PATIENT
  Sex: Female

DRUGS (5)
  1. VALPROIC ACID. [Suspect]
     Active Substance: VALPROIC ACID
     Indication: EPILEPSY
     Dosage: 1.8 GRAM, QD
     Route: 064
  2. LEVETIRACETAM. [Suspect]
     Active Substance: LEVETIRACETAM
     Indication: EPILEPSY
     Dosage: 1.2 GRAM, QD
     Route: 064
  3. OXYTOCIN. [Suspect]
     Active Substance: OXYTOCIN
     Indication: INTERVENTIONAL PROCEDURE
     Dosage: UNK
     Route: 064
  4. MISOPROSTOL. [Suspect]
     Active Substance: MISOPROSTOL
     Indication: INTERVENTIONAL PROCEDURE
     Dosage: UNK
     Route: 064
  5. SULPROSTONE [Suspect]
     Active Substance: SULPROSTONE
     Indication: INTERVENTIONAL PROCEDURE
     Dosage: UNK
     Route: 064

REACTIONS (2)
  - Foetal exposure during pregnancy [Recovered/Resolved]
  - Meningomyelocele [Unknown]
